FAERS Safety Report 19303758 (Version 5)
Quarter: 2021Q3

REPORT INFORMATION
  Report Type: Report from Study
  Country: SG (occurrence: SG)
  Receive Date: 20210525
  Receipt Date: 20210902
  Transmission Date: 20211014
  Serious: Yes (Life-Threatening, Hospitalization)
  Sender: FDA-Public Use
  Company Number: SG-ROCHE-2832800

PATIENT
  Age: 61 Year
  Sex: Male
  Weight: 63.1 kg

DRUGS (10)
  1. PREDNISOLONE. [Concomitant]
     Active Substance: PREDNISOLONE
  2. PIPTAZO [Concomitant]
  3. IBUPROFEN. [Concomitant]
     Active Substance: IBUPROFEN
  4. CARBOPLATIN. [Suspect]
     Active Substance: CARBOPLATIN
     Indication: NON-SMALL CELL LUNG CANCER
     Route: 042
     Dates: start: 20210427, end: 20210427
  5. ATEZOLIZUMAB. [Suspect]
     Active Substance: ATEZOLIZUMAB
     Indication: NON-SMALL CELL LUNG CANCER
     Route: 042
     Dates: start: 20210427, end: 20210427
  6. AMLODIPINE [Concomitant]
     Active Substance: AMLODIPINE BESYLATE
  7. BISOPROLOL [Concomitant]
     Active Substance: BISOPROLOL
  8. METHYLPREDNISOLONE. [Concomitant]
     Active Substance: METHYLPREDNISOLONE
     Route: 042
  9. BEVACIZUMAB. [Suspect]
     Active Substance: BEVACIZUMAB
     Indication: NON-SMALL CELL LUNG CANCER
     Route: 042
     Dates: start: 20210427, end: 20210427
  10. PACLITAXEL. [Suspect]
     Active Substance: PACLITAXEL
     Indication: NON-SMALL CELL LUNG CANCER
     Route: 042
     Dates: start: 20210427, end: 20210427

REACTIONS (3)
  - Nervous system disorder [Recovered/Resolved with Sequelae]
  - Hypertension [Recovered/Resolved]
  - Cytokine release syndrome [Recovered/Resolved]

NARRATIVE: CASE EVENT DATE: 20210502
